FAERS Safety Report 26054128 (Version 1)
Quarter: 2025Q4

REPORT INFORMATION
  Report Type: Spontaneous
  Country: EU (occurrence: EU)
  Receive Date: 20251117
  Receipt Date: 20251117
  Transmission Date: 20260118
  Serious: Yes (Death, Other)
  Sender: AMNEAL
  Company Number: EU-AMNEAL PHARMACEUTICALS-2025-AMRX-04385

PATIENT
  Age: 31 Year
  Sex: Female

DRUGS (1)
  1. AMPHETAMINE SULFATE [Suspect]
     Active Substance: AMPHETAMINE SULFATE
     Indication: Product used for unknown indication
     Dosage: UNK
     Route: 042

REACTIONS (6)
  - Aorto-cardiac fistula [Fatal]
  - Endocarditis [Fatal]
  - Pericardial haemorrhage [Fatal]
  - Circulatory collapse [Unknown]
  - Exposure during pregnancy [Unknown]
  - Drug abuse [Unknown]
